FAERS Safety Report 21499079 (Version 1)
Quarter: 2022Q4

REPORT INFORMATION
  Report Type: Spontaneous
  Country: US (occurrence: None)
  Receive Date: 20221022
  Receipt Date: 20221022
  Transmission Date: 20230112
  Serious: Yes (Life-Threatening, Hospitalization, Disabling)
  Sender: FDA-Public Use
  Company Number: None

PATIENT
  Age: 39 Year
  Sex: Male
  Weight: 139.5 kg

DRUGS (1)
  1. JARDIANCE [Suspect]
     Active Substance: EMPAGLIFLOZIN
     Indication: Diabetes mellitus
     Dosage: OTHER QUANTITY : 1 TABLET(S);?
     Route: 048

REACTIONS (7)
  - Osteomyelitis [None]
  - Candida infection [None]
  - Pathogen resistance [None]
  - Foot amputation [None]
  - Toe amputation [None]
  - Visual impairment [None]
  - Limb injury [None]

NARRATIVE: CASE EVENT DATE: 20220309
